FAERS Safety Report 18973563 (Version 1)
Quarter: 2021Q1

REPORT INFORMATION
  Report Type: Spontaneous
  Country: CA (occurrence: CA)
  Receive Date: 20210305
  Receipt Date: 20210305
  Transmission Date: 20210420
  Serious: Yes (Death, Other)
  Sender: FDA-Public Use
  Company Number: CA-PFIZER INC-2020056468

PATIENT
  Age: 54 Year
  Sex: Female

DRUGS (2)
  1. INLYTA [Suspect]
     Active Substance: AXITINIB
     Indication: BREAST CANCER
     Dosage: 5 MG, 2X/DAY
     Route: 048
     Dates: start: 20200226
  2. INLYTA [Suspect]
     Active Substance: AXITINIB
     Dosage: 7 MG

REACTIONS (7)
  - Hypertension [Unknown]
  - Death [Fatal]
  - Thyroid disorder [Unknown]
  - Vomiting [Unknown]
  - Off label use [Unknown]
  - Nausea [Unknown]
  - Fatigue [Unknown]

NARRATIVE: CASE EVENT DATE: 202011
